FAERS Safety Report 15546091 (Version 1)
Quarter: 2018Q4

REPORT INFORMATION
  Report Type: Spontaneous
  Country: US (occurrence: US)
  Receive Date: 20181023
  Receipt Date: 20181023
  Transmission Date: 20190205
  Serious: Yes (Other)
  Sender: FDA-Public Use
  Company Number: None

PATIENT
  Age: 61 Year
  Sex: Female
  Weight: 49.86 kg

DRUGS (6)
  1. MULTI FOR HER [Concomitant]
  2. VITAMIN C [Concomitant]
     Active Substance: ASCORBIC ACID
  3. XELODA [Suspect]
     Active Substance: CAPECITABINE
     Indication: BREAST CANCER
     Route: 048
     Dates: start: 20180530
  4. XANAX [Concomitant]
     Active Substance: ALPRAZOLAM
  5. GLUCOSAMINE CHOND [Concomitant]
  6. OMEGA 3 500 [Concomitant]

REACTIONS (3)
  - Erythema [None]
  - Peripheral swelling [None]
  - Pain [None]

NARRATIVE: CASE EVENT DATE: 20181023
